FAERS Safety Report 19731171 (Version 1)
Quarter: 2021Q3

REPORT INFORMATION
  Report Type: Report from Study
  Country: DE (occurrence: DE)
  Receive Date: 20210821
  Receipt Date: 20210821
  Transmission Date: 20211014
  Serious: Yes (Death, Life-Threatening, Hospitalization, Other)
  Sender: FDA-Public Use
  Company Number: DE-SHIRE-DE201931976

PATIENT
  Sex: Male
  Weight: 57 kg

DRUGS (12)
  1. TEDUGLUTIDE [Suspect]
     Active Substance: TEDUGLUTIDE
     Indication: SHORT-BOWEL SYNDROME
     Dosage: 2.8 MILLIGRAM, TED 0.05 MG KG DAILY DOSE, 7 DOSES PER WEEK
     Route: 065
     Dates: start: 201611, end: 201811
  2. URSODESOXYCHOLIC ACID [Concomitant]
     Active Substance: URSODIOL
     Indication: CHOLESTASIS
  3. BEZAFIBRAT [Concomitant]
     Active Substance: BEZAFIBRATE
     Indication: CHOLESTASIS
  4. TEDUGLUTIDE [Suspect]
     Active Substance: TEDUGLUTIDE
     Indication: SHORT-BOWEL SYNDROME
     Dosage: 2.8 MILLIGRAM, TED 0.05 MG KG DAILY DOSE, 7 DOSES PER WEEK
     Route: 065
     Dates: start: 201611, end: 201811
  5. TEDUGLUTIDE [Suspect]
     Active Substance: TEDUGLUTIDE
     Indication: SHORT-BOWEL SYNDROME
     Dosage: 2.8 MILLIGRAM, TED 0.05 MG KG DAILY DOSE, 7 DOSES PER WEEK
     Route: 065
     Dates: start: 201611, end: 201811
  6. TEDUGLUTIDE [Suspect]
     Active Substance: TEDUGLUTIDE
     Dosage: 2.8 MILLIGRAM, TED 0.04 MG KG DAILY DOSE, 7 DOSES PER WEEK
     Route: 065
     Dates: start: 201811, end: 201901
  7. URSODESOXYCHOLIC ACID [Concomitant]
     Active Substance: URSODIOL
     Indication: PROGRESSIVE FAMILIAL INTRAHEPATIC CHOLESTASIS
  8. VEDOLIZUMAB [Concomitant]
     Active Substance: VEDOLIZUMAB
     Indication: CROHN^S DISEASE
  9. TEDUGLUTIDE [Suspect]
     Active Substance: TEDUGLUTIDE
     Indication: SHORT-BOWEL SYNDROME
     Dosage: 2.8 MILLIGRAM, TED 0.05 MG KG DAILY DOSE, 7 DOSES PER WEEK
     Route: 065
     Dates: start: 201611, end: 201811
  10. TEDUGLUTIDE [Suspect]
     Active Substance: TEDUGLUTIDE
     Dosage: 2.8 MILLIGRAM, TED 0.04 MG KG DAILY DOSE, 7 DOSES PER WEEK
     Route: 065
     Dates: start: 201811, end: 201901
  11. TEDUGLUTIDE [Suspect]
     Active Substance: TEDUGLUTIDE
     Dosage: 2.8 MILLIGRAM, TED 0.04 MG KG DAILY DOSE, 7 DOSES PER WEEK
     Route: 065
     Dates: start: 201811, end: 201901
  12. TEDUGLUTIDE [Suspect]
     Active Substance: TEDUGLUTIDE
     Dosage: 2.8 MILLIGRAM, TED 0.04 MG KG DAILY DOSE, 7 DOSES PER WEEK
     Route: 065
     Dates: start: 201811, end: 201901

REACTIONS (2)
  - Pneumonia [Fatal]
  - Stoma site haemorrhage [Recovered/Resolved]

NARRATIVE: CASE EVENT DATE: 20190419
